FAERS Safety Report 5074710-X (Version None)
Quarter: 2006Q3

REPORT INFORMATION
  Report Type: 
  Country: None (occurrence: None)
  Receive Date: 20060807
  Receipt Date: 20060728
  Transmission Date: 20061208
  Serious: Yes (Hospitalization)
  Sender: FDA-Public Use
  Company Number: 2006092719

PATIENT
  Age: 73 Year
  Sex: Male

DRUGS (1)
  1. CITALOR (ATORVASTATIN) [Suspect]
     Indication: DRUG USE FOR UNKNOWN INDICATION
     Dosage: ORAL
     Route: 048
     Dates: start: 20050101

REACTIONS (1)
  - MYOCARDIAL INFARCTION [None]
